FAERS Safety Report 23550618 (Version 2)
Quarter: 2024Q3

REPORT INFORMATION
  Report Type: Report from Study
  Country: IN (occurrence: IN)
  Receive Date: 20240221
  Receipt Date: 20240725
  Transmission Date: 20241016
  Serious: Yes (Other)
  Sender: INCYTE
  Company Number: IN-002147023-NVSC2024IN032789

PATIENT

DRUGS (2)
  1. RUXOLITINIB [Suspect]
     Active Substance: RUXOLITINIB
     Indication: Graft versus host disease
     Dosage: 5 MG, BID
     Route: 048
  2. RUXOLITINIB [Suspect]
     Active Substance: RUXOLITINIB
     Dosage: 10 MG, BID (5 MG 2-0-2, START REDUCING BY 5MG EVERY MONTH FORM 6TH SEPTEMBER)
     Route: 048
     Dates: start: 20231023

REACTIONS (6)
  - Cough [Unknown]
  - Febrile neutropenia [Unknown]
  - Pyrexia [Unknown]
  - Tremor [Unknown]
  - Platelet count increased [Unknown]
  - White blood cell count increased [Unknown]

NARRATIVE: CASE EVENT DATE: 20230322
